FAERS Safety Report 22396613 (Version 1)
Quarter: 2023Q2

REPORT INFORMATION
  Report Type: Spontaneous
  Country: CA (occurrence: CA)
  Receive Date: 20230601
  Receipt Date: 20230601
  Transmission Date: 20230721
  Serious: Yes (Death, Hospitalization)
  Sender: FDA-Public Use
  Company Number: CA-TEVA-2023-CA-2891624

PATIENT
  Sex: Female

DRUGS (171)
  1. ACETAMINOPHEN [Suspect]
     Active Substance: ACETAMINOPHEN
     Indication: Product used for unknown indication
     Route: 065
  2. ALENDRONATE SODIUM [Suspect]
     Active Substance: ALENDRONATE SODIUM
     Indication: Product used for unknown indication
     Route: 065
  3. ALENDRONATE SODIUM [Suspect]
     Active Substance: ALENDRONATE SODIUM
     Indication: Rheumatoid arthritis
     Route: 065
  4. ALENDRONATE SODIUM [Suspect]
     Active Substance: ALENDRONATE SODIUM
     Route: 065
  5. ALENDRONATE SODIUM [Suspect]
     Active Substance: ALENDRONATE SODIUM
     Route: 065
  6. ALENDRONATE SODIUM [Suspect]
     Active Substance: ALENDRONATE SODIUM
     Route: 065
  7. ALENDRONATE SODIUM [Suspect]
     Active Substance: ALENDRONATE SODIUM
     Route: 065
  8. ALENDRONATE SODIUM [Suspect]
     Active Substance: ALENDRONATE SODIUM
     Route: 065
  9. ALENDRONATE SODIUM [Suspect]
     Active Substance: ALENDRONATE SODIUM
     Route: 065
  10. AZATHIOPRINE SODIUM [Suspect]
     Active Substance: AZATHIOPRINE SODIUM
     Indication: Rheumatoid arthritis
     Route: 065
  11. CALCIUM CARBONATE [Suspect]
     Active Substance: CALCIUM CARBONATE
     Indication: Product used for unknown indication
     Route: 065
  12. DICLOFENAC SODIUM [Suspect]
     Active Substance: DICLOFENAC SODIUM
     Indication: Product used for unknown indication
     Route: 065
  13. DICLOFENAC SODIUM [Suspect]
     Active Substance: DICLOFENAC SODIUM
     Route: 065
  14. DICLOFENAC SODIUM [Suspect]
     Active Substance: DICLOFENAC SODIUM
     Route: 065
  15. DICLOFENAC SODIUM [Suspect]
     Active Substance: DICLOFENAC SODIUM
     Route: 065
  16. DICLOFENAC SODIUM [Suspect]
     Active Substance: DICLOFENAC SODIUM
     Route: 065
  17. DICLOFENAC SODIUM [Suspect]
     Active Substance: DICLOFENAC SODIUM
     Route: 065
  18. METHOTREXATE [Suspect]
     Active Substance: METHOTREXATE
     Indication: Rheumatoid arthritis
     Route: 065
  19. METHOTREXATE [Suspect]
     Active Substance: METHOTREXATE
     Route: 065
  20. METHOTREXATE [Suspect]
     Active Substance: METHOTREXATE
     Route: 065
  21. METHOTREXATE [Suspect]
     Active Substance: METHOTREXATE
     Route: 016
  22. METHOTREXATE [Suspect]
     Active Substance: METHOTREXATE
     Route: 065
  23. METHOTREXATE [Suspect]
     Active Substance: METHOTREXATE
     Route: 065
  24. METHOTREXATE [Suspect]
     Active Substance: METHOTREXATE
     Route: 065
  25. MINOCYCLINE HYDROCHLORIDE [Suspect]
     Active Substance: MINOCYCLINE HYDROCHLORIDE
     Indication: Product used for unknown indication
     Route: 065
  26. MINOCYCLINE HYDROCHLORIDE [Suspect]
     Active Substance: MINOCYCLINE HYDROCHLORIDE
     Route: 065
  27. MINOCYCLINE HYDROCHLORIDE [Suspect]
     Active Substance: MINOCYCLINE HYDROCHLORIDE
     Route: 065
  28. MORPHINE SULFATE [Suspect]
     Active Substance: MORPHINE SULFATE
     Indication: Rheumatoid arthritis
     Route: 065
  29. PANTOPRAZOLE [Suspect]
     Active Substance: PANTOPRAZOLE
     Indication: Dyspepsia
     Route: 065
  30. ACTEMRA [Suspect]
     Active Substance: TOCILIZUMAB
     Indication: Rheumatoid arthritis
     Route: 058
  31. ACTEMRA [Suspect]
     Active Substance: TOCILIZUMAB
     Route: 058
  32. ACTEMRA [Suspect]
     Active Substance: TOCILIZUMAB
     Route: 058
  33. ACTEMRA [Suspect]
     Active Substance: TOCILIZUMAB
     Route: 058
  34. AMMONIUM CHLORIDE\DIPHENHYDRAMINE HYDROCHLORIDE\MENTHOL\SODIUM CITRATE [Suspect]
     Active Substance: AMMONIUM CHLORIDE\DIPHENHYDRAMINE HYDROCHLORIDE\MENTHOL\SODIUM CITRATE
     Indication: Product used for unknown indication
     Route: 065
  35. AMMONIUM CHLORIDE\DIPHENHYDRAMINE HYDROCHLORIDE\MENTHOL\SODIUM CITRATE [Suspect]
     Active Substance: AMMONIUM CHLORIDE\DIPHENHYDRAMINE HYDROCHLORIDE\MENTHOL\SODIUM CITRATE
     Route: 065
  36. PREDNISONE [Suspect]
     Active Substance: PREDNISONE
     Indication: Product used for unknown indication
     Route: 065
  37. PREDNISONE [Suspect]
     Active Substance: PREDNISONE
     Route: 048
  38. ARAVA [Suspect]
     Active Substance: LEFLUNOMIDE
     Indication: Product used for unknown indication
     Route: 048
  39. ARAVA [Suspect]
     Active Substance: LEFLUNOMIDE
     Route: 048
  40. ARAVA [Suspect]
     Active Substance: LEFLUNOMIDE
     Dosage: 10 MILLIGRAM DAILY;
     Route: 048
  41. ASACOL [Suspect]
     Active Substance: MESALAMINE
     Indication: Crohn^s disease
     Route: 065
  42. BUPIVACAINE HYDROCHLORIDE [Suspect]
     Active Substance: BUPIVACAINE HYDROCHLORIDE
     Indication: Rheumatoid arthritis
     Route: 065
  43. AMINOSALICYLATE CALCIUM [Suspect]
     Active Substance: AMINOSALICYLATE CALCIUM
     Indication: Product used for unknown indication
     Route: 065
  44. CALCIUM CITRATE [Suspect]
     Active Substance: CALCIUM CITRATE
     Indication: Product used for unknown indication
     Route: 065
  45. CALCIUM CITRATE [Suspect]
     Active Substance: CALCIUM CITRATE
     Route: 065
  46. MINERALS\VITAMINS [Suspect]
     Active Substance: MINERALS\VITAMINS
     Indication: Rheumatoid arthritis
     Route: 065
  47. CETIRIZINE HYDROCHLORIDE [Suspect]
     Active Substance: CETIRIZINE HYDROCHLORIDE
     Indication: Product used for unknown indication
     Route: 065
  48. CETIRIZINE HYDROCHLORIDE [Suspect]
     Active Substance: CETIRIZINE HYDROCHLORIDE
     Route: 065
  49. CETIRIZINE HYDROCHLORIDE [Suspect]
     Active Substance: CETIRIZINE HYDROCHLORIDE
     Route: 065
  50. CETIRIZINE HYDROCHLORIDE [Suspect]
     Active Substance: CETIRIZINE HYDROCHLORIDE
     Route: 065
  51. CETIRIZINE HYDROCHLORIDE [Suspect]
     Active Substance: CETIRIZINE HYDROCHLORIDE
     Route: 065
  52. CETIRIZINE HYDROCHLORIDE [Suspect]
     Active Substance: CETIRIZINE HYDROCHLORIDE
     Route: 065
  53. CETIRIZINE HYDROCHLORIDE [Suspect]
     Active Substance: CETIRIZINE HYDROCHLORIDE
     Route: 065
  54. CETIRIZINE HYDROCHLORIDE [Suspect]
     Active Substance: CETIRIZINE HYDROCHLORIDE
     Route: 065
  55. CIMZIA [Suspect]
     Active Substance: CERTOLIZUMAB PEGOL
     Indication: Rheumatoid arthritis
     Route: 058
  56. CIMZIA [Suspect]
     Active Substance: CERTOLIZUMAB PEGOL
     Route: 058
  57. CIMZIA [Suspect]
     Active Substance: CERTOLIZUMAB PEGOL
     Route: 058
  58. HYDROCORTISONE ACETATE [Suspect]
     Active Substance: HYDROCORTISONE ACETATE
     Indication: Rheumatoid arthritis
     Route: 048
  59. HYDROCORTISONE ACETATE [Suspect]
     Active Substance: HYDROCORTISONE ACETATE
     Route: 048
  60. HYDROCORTISONE ACETATE [Suspect]
     Active Substance: HYDROCORTISONE ACETATE
     Route: 048
  61. COSENTYX [Suspect]
     Active Substance: SECUKINUMAB
     Indication: Rheumatoid arthritis
     Route: 065
  62. COSENTYX [Suspect]
     Active Substance: SECUKINUMAB
     Route: 065
  63. DESOXIMETASONE\FRAMYCETIN SULFATE\GRAMICIDIN [Suspect]
     Active Substance: DESOXIMETASONE\FRAMYCETIN SULFATE\GRAMICIDIN
     Indication: Rheumatoid arthritis
     Route: 061
  64. DESOXIMETASONE\FRAMYCETIN SULFATE\GRAMICIDIN [Suspect]
     Active Substance: DESOXIMETASONE\FRAMYCETIN SULFATE\GRAMICIDIN
     Route: 061
  65. DESOXIMETASONE\FRAMYCETIN SULFATE\GRAMICIDIN [Suspect]
     Active Substance: DESOXIMETASONE\FRAMYCETIN SULFATE\GRAMICIDIN
     Route: 061
  66. DIPHENHYDRAMINE [Suspect]
     Active Substance: DIPHENHYDRAMINE
     Indication: Product used for unknown indication
     Route: 065
  67. ENBREL [Suspect]
     Active Substance: ETANERCEPT
     Indication: Rheumatoid arthritis
     Route: 058
  68. ENBREL [Suspect]
     Active Substance: ETANERCEPT
     Route: 058
  69. ENBREL [Suspect]
     Active Substance: ETANERCEPT
     Route: 058
  70. ERELZI [Suspect]
     Active Substance: ETANERCEPT-SZZS
     Indication: Rheumatoid arthritis
     Route: 065
  71. ERELZI [Suspect]
     Active Substance: ETANERCEPT-SZZS
     Route: 065
  72. ERELZI [Suspect]
     Active Substance: ETANERCEPT-SZZS
     Route: 065
  73. ERELZI [Suspect]
     Active Substance: ETANERCEPT-SZZS
     Dosage: 50 MILLIGRAM DAILY;
     Route: 065
  74. FLUMETHASONE\SALICYLIC ACID [Suspect]
     Active Substance: FLUMETHASONE\SALICYLIC ACID
     Indication: Product used for unknown indication
     Route: 058
  75. FLUMETHASONE\SALICYLIC ACID [Suspect]
     Active Substance: FLUMETHASONE\SALICYLIC ACID
     Route: 065
  76. FOLIC ACID [Suspect]
     Active Substance: FOLIC ACID
     Indication: Rheumatoid arthritis
     Route: 065
  77. FOLIC ACID [Suspect]
     Active Substance: FOLIC ACID
     Route: 065
  78. FOLIC ACID [Suspect]
     Active Substance: FOLIC ACID
     Route: 065
  79. FOLIC ACID [Suspect]
     Active Substance: FOLIC ACID
     Route: 065
  80. FOLIC ACID [Suspect]
     Active Substance: FOLIC ACID
     Route: 065
  81. FOLIC ACID [Suspect]
     Active Substance: FOLIC ACID
     Route: 065
  82. FOLIC ACID [Suspect]
     Active Substance: FOLIC ACID
     Route: 065
  83. FOLIC ACID [Suspect]
     Active Substance: FOLIC ACID
     Route: 065
  84. FOLIC ACID [Suspect]
     Active Substance: FOLIC ACID
     Route: 065
  85. FOLIC ACID [Suspect]
     Active Substance: FOLIC ACID
     Route: 065
  86. FOLIC ACID [Suspect]
     Active Substance: FOLIC ACID
     Route: 065
  87. FOLIC ACID [Suspect]
     Active Substance: FOLIC ACID
     Route: 065
  88. FOSAMAX [Suspect]
     Active Substance: ALENDRONATE SODIUM
     Indication: Rheumatoid arthritis
     Route: 016
  89. ENOXOLONE [Suspect]
     Active Substance: ENOXOLONE
     Indication: Product used for unknown indication
     Route: 065
  90. HUMIRA [Suspect]
     Active Substance: ADALIMUMAB
     Indication: Rheumatoid arthritis
     Route: 058
  91. HUMIRA [Suspect]
     Active Substance: ADALIMUMAB
     Route: 058
  92. HUMIRA [Suspect]
     Active Substance: ADALIMUMAB
     Route: 065
  93. HYDROXYCHLOROQUINE SULFATE [Suspect]
     Active Substance: HYDROXYCHLOROQUINE SULFATE
     Indication: Product used for unknown indication
     Route: 048
  94. HYDROXYCHLOROQUINE SULFATE [Suspect]
     Active Substance: HYDROXYCHLOROQUINE SULFATE
     Indication: Rheumatoid arthritis
     Dosage: 40 MILLIGRAM DAILY;
     Route: 048
  95. HYDROXYCHLOROQUINE SULFATE [Suspect]
     Active Substance: HYDROXYCHLOROQUINE SULFATE
     Dosage: 40 MILLIGRAM DAILY;
     Route: 065
  96. HYDROXYCHLOROQUINE SULFATE [Suspect]
     Active Substance: HYDROXYCHLOROQUINE SULFATE
     Route: 065
  97. HYDROXYCHLOROQUINE SULFATE [Suspect]
     Active Substance: HYDROXYCHLOROQUINE SULFATE
     Dosage: 400 MILLIGRAM DAILY;
     Route: 065
  98. HYDROXYCHLOROQUINE SULFATE [Suspect]
     Active Substance: HYDROXYCHLOROQUINE SULFATE
     Dosage: 400 MILLIGRAM DAILY;
     Route: 065
  99. HYDROXYCHLOROQUINE SULFATE [Suspect]
     Active Substance: HYDROXYCHLOROQUINE SULFATE
     Dosage: 400 MILLIGRAM DAILY;
     Route: 065
  100. HYDROXYCHLOROQUINE SULFATE [Suspect]
     Active Substance: HYDROXYCHLOROQUINE SULFATE
     Route: 065
  101. HYDROXYCHLOROQUINE SULFATE [Suspect]
     Active Substance: HYDROXYCHLOROQUINE SULFATE
     Route: 065
  102. INFLIXIMAB [Suspect]
     Active Substance: INFLIXIMAB
     Indication: Product used for unknown indication
     Route: 042
  103. INFLIXIMAB [Suspect]
     Active Substance: INFLIXIMAB
     Route: 042
  104. KEVZARA [Suspect]
     Active Substance: SARILUMAB
     Indication: Rheumatoid arthritis
     Route: 065
  105. LIDOCAINE [Suspect]
     Active Substance: LIDOCAINE
     Indication: Product used for unknown indication
     Route: 065
  106. MENTHOL [Suspect]
     Active Substance: MENTHOL
     Indication: Product used for unknown indication
     Route: 065
  107. METHOTREXATE [Suspect]
     Active Substance: METHOTREXATE
     Indication: Rheumatoid arthritis
     Route: 048
  108. METHOTREXATE [Suspect]
     Active Substance: METHOTREXATE
     Route: 048
  109. METHOTREXATE [Suspect]
     Active Substance: METHOTREXATE
     Dosage: 25 MILLIGRAM DAILY;
     Route: 048
  110. METHOTREXATE [Suspect]
     Active Substance: METHOTREXATE
     Route: 048
  111. METHOTREXATE [Suspect]
     Active Substance: METHOTREXATE
     Route: 048
  112. METHOTREXATE [Suspect]
     Active Substance: METHOTREXATE
     Dosage: 20 MILLIGRAM DAILY;
     Route: 048
  113. METHOTREXATE [Suspect]
     Active Substance: METHOTREXATE
     Route: 048
  114. NEOMYCIN SULFATE [Suspect]
     Active Substance: NEOMYCIN SULFATE
     Indication: Product used for unknown indication
     Route: 065
  115. ORENCIA [Suspect]
     Active Substance: ABATACEPT
     Indication: Rheumatoid arthritis
     Route: 065
  116. ORENCIA [Suspect]
     Active Substance: ABATACEPT
     Route: 065
  117. PHTHALYLSULFATHIAZOLE [Suspect]
     Active Substance: PHTHALYLSULFATHIAZOLE
     Indication: Product used for unknown indication
     Route: 065
  118. PHTHALYLSULFATHIAZOLE [Suspect]
     Active Substance: PHTHALYLSULFATHIAZOLE
     Route: 065
  119. PHTHALYLSULFATHIAZOLE [Suspect]
     Active Substance: PHTHALYLSULFATHIAZOLE
     Route: 065
  120. PHTHALYLSULFATHIAZOLE [Suspect]
     Active Substance: PHTHALYLSULFATHIAZOLE
     Route: 065
  121. PREDNISONE [Suspect]
     Active Substance: PREDNISONE
     Indication: Product used for unknown indication
     Route: 048
  122. RITUXIMAB [Suspect]
     Active Substance: RITUXIMAB
     Route: 048
  123. PREDNISONE [Suspect]
     Active Substance: PREDNISONE
     Route: 048
  124. RITUXIMAB [Suspect]
     Active Substance: RITUXIMAB
     Route: 048
  125. REMICADE [Suspect]
     Active Substance: INFLIXIMAB
     Indication: Rheumatoid arthritis
     Route: 042
  126. REMICADE [Suspect]
     Active Substance: INFLIXIMAB
     Route: 042
  127. REMICADE [Suspect]
     Active Substance: INFLIXIMAB
     Route: 042
  128. REMICADE [Suspect]
     Active Substance: INFLIXIMAB
     Route: 042
  129. REMICADE [Suspect]
     Active Substance: INFLIXIMAB
     Route: 042
  130. REMICADE [Suspect]
     Active Substance: INFLIXIMAB
     Route: 042
  131. SIMPONI [Suspect]
     Active Substance: GOLIMUMAB
     Indication: Rheumatoid arthritis
     Route: 065
  132. SIMPONI [Suspect]
     Active Substance: GOLIMUMAB
     Route: 065
  133. SOLU-MEDROL [Suspect]
     Active Substance: METHYLPREDNISOLONE SODIUM SUCCINATE
     Indication: Product used for unknown indication
     Route: 048
  134. STELARA [Suspect]
     Active Substance: USTEKINUMAB
     Indication: Rheumatoid arthritis
     Route: 065
  135. STELARA [Suspect]
     Active Substance: USTEKINUMAB
     Route: 065
  136. STELARA [Suspect]
     Active Substance: USTEKINUMAB
     Route: 065
  137. SULFASALAZINE [Suspect]
     Active Substance: SULFASALAZINE
     Indication: Product used for unknown indication
     Dosage: 1 GRAM DAILY;
     Route: 058
  138. SULFASALAZINE [Suspect]
     Active Substance: SULFASALAZINE
     Dosage: 2 GRAM DAILY;
     Route: 058
  139. SULFASALAZINE [Suspect]
     Active Substance: SULFASALAZINE
     Route: 058
  140. SULFASALAZINE [Suspect]
     Active Substance: SULFASALAZINE
     Route: 058
  141. SULFASALAZINE [Suspect]
     Active Substance: SULFASALAZINE
     Route: 058
  142. SULFASALAZINE [Suspect]
     Active Substance: SULFASALAZINE
     Route: 058
  143. SULFASALAZINE [Suspect]
     Active Substance: SULFASALAZINE
     Route: 058
  144. SULFASALAZINE [Suspect]
     Active Substance: SULFASALAZINE
     Route: 058
  145. SULFASALAZINE [Suspect]
     Active Substance: SULFASALAZINE
     Route: 058
  146. SULFASALAZINE [Suspect]
     Active Substance: SULFASALAZINE
     Dosage: 4 MILLIGRAM DAILY;
     Route: 058
  147. TIOCONAZOLE [Suspect]
     Active Substance: TIOCONAZOLE
     Indication: Product used for unknown indication
     Route: 065
  148. TOCILIZUMAB [Suspect]
     Active Substance: TOCILIZUMAB
     Indication: Rheumatoid arthritis
     Route: 058
  149. TOCILIZUMAB [Suspect]
     Active Substance: TOCILIZUMAB
     Route: 042
  150. TOCILIZUMAB [Suspect]
     Active Substance: TOCILIZUMAB
     Route: 016
  151. UREA [Suspect]
     Active Substance: UREA
     Indication: Product used for unknown indication
     Route: 065
  152. USTEKINUMAB [Suspect]
     Active Substance: USTEKINUMAB
     Indication: Rheumatoid arthritis
     Route: 058
  153. USTEKINUMAB [Suspect]
     Active Substance: USTEKINUMAB
     Route: 058
  154. USTEKINUMAB [Suspect]
     Active Substance: USTEKINUMAB
     Route: 058
  155. XELJANZ [Suspect]
     Active Substance: TOFACITINIB CITRATE
     Indication: Rheumatoid arthritis
     Route: 065
  156. XELJANZ [Suspect]
     Active Substance: TOFACITINIB CITRATE
     Route: 065
  157. ZINC [Suspect]
     Active Substance: ZINC
     Indication: Rheumatoid arthritis
     Route: 065
  158. ACETAMINOPHEN/BUTALBITAL/CAFFEINE/CODEINE PHOSPHATE [Concomitant]
     Indication: Product used for unknown indication
  159. ATIVAN [Concomitant]
     Active Substance: LORAZEPAM
     Indication: Product used for unknown indication
  160. BUTALBITAL [Concomitant]
     Active Substance: BUTALBITAL
     Indication: Product used for unknown indication
  161. CAFFEINE [Concomitant]
     Active Substance: CAFFEINE
     Indication: Product used for unknown indication
  162. CHONDROITIN SULFATE/GLUCOSAMINE SULFATE/MANGANESE/VITAMIN C [Concomitant]
     Indication: Product used for unknown indication
  163. CODEINE [Concomitant]
     Active Substance: CODEINE
     Indication: Product used for unknown indication
     Route: 065
  164. CODEINE [Concomitant]
     Active Substance: CODEINE
     Route: 065
  165. CYANOCOBALAMIN;ERGOCALCIFEROL;LYSINE HYDROCHLORIDE;NICOTINAMIDE;PYRIDO [Concomitant]
     Indication: Product used for unknown indication
     Route: 065
  166. DESOGESTREL\ETHINYL ESTRADIOL [Concomitant]
     Active Substance: DESOGESTREL\ETHINYL ESTRADIOL
     Indication: Product used for unknown indication
     Route: 065
  167. DOCONEXENT\ICOSAPENT [Concomitant]
     Active Substance: DOCONEXENT\ICOSAPENT
     Indication: Product used for unknown indication
  168. L-LYSINE HYDROCHLORIDE/NICOTINAMIDE/PYRIDOXINE HYDROCHLORIDE/RETINOL P [Concomitant]
     Indication: Product used for unknown indication
     Route: 065
  169. ZESTRIL [Concomitant]
     Active Substance: LISINOPRIL
     Indication: Product used for unknown indication
     Route: 065
  170. CLONIDINE HYDROCHLORIDE [Suspect]
     Active Substance: CLONIDINE HYDROCHLORIDE
  171. MORPHINE SULFATE [Suspect]
     Active Substance: MORPHINE SULFATE

REACTIONS (28)
  - Abdominal discomfort [Fatal]
  - Alopecia [Fatal]
  - Arthralgia [Fatal]
  - Condition aggravated [Fatal]
  - Decreased appetite [Fatal]
  - Dizziness [Fatal]
  - Fatigue [Fatal]
  - Fibromyalgia [Fatal]
  - General physical health deterioration [Fatal]
  - Headache [Fatal]
  - Helicobacter infection [Fatal]
  - Hypercholesterolaemia [Fatal]
  - Hypertension [Fatal]
  - Hypoaesthesia [Fatal]
  - Infusion related reaction [Fatal]
  - Mobility decreased [Fatal]
  - Osteoarthritis [Fatal]
  - Swelling [Fatal]
  - Type 2 diabetes mellitus [Fatal]
  - Vomiting [Fatal]
  - Blood cholesterol increased [Fatal]
  - C-reactive protein increased [Fatal]
  - Hepatic enzyme increased [Fatal]
  - Drug ineffective [Fatal]
  - Intentional product use issue [Fatal]
  - Off label use [Fatal]
  - Product use in unapproved indication [Fatal]
  - Drug intolerance [Fatal]
